FAERS Safety Report 4743923-6 (Version None)
Quarter: 2005Q3

REPORT INFORMATION
  Report Type: 
  Country: None (occurrence: None)
  Receive Date: 20050809
  Receipt Date: 20050801
  Transmission Date: 20060218
  Serious: Yes (Life-Threatening)
  Sender: FDA-Public Use
  Company Number: 2005-130998-NL

PATIENT
  Age: 37 Year
  Sex: Female

DRUGS (5)
  1. ROCURONIUM BROMIDE (BATCH #: 177017) [Suspect]
     Dosage: 30 MG ONCE
     Route: 042
     Dates: start: 20050719
  2. ALFENTANIL [Concomitant]
  3. FENTANYL [Concomitant]
  4. THIOPENTAL SODIUM [Suspect]
     Indication: INDUCTION OF ANAESTHESIA
     Dosage: 500 MG ONCE
     Route: 042
     Dates: start: 20050719
  5. NITROUS OXIDE [Suspect]
     Indication: INDUCTION OF ANAESTHESIA
     Dosage: 50 % ONCE
     Dates: start: 20050719

REACTIONS (6)
  - CAESAREAN SECTION [None]
  - DELAYED RECOVERY FROM ANAESTHESIA [None]
  - DRUG EXPOSURE DURING PREGNANCY [None]
  - ELECTROCARDIOGRAM ST SEGMENT DEPRESSION [None]
  - HYPERTENSION [None]
  - SINUS TACHYCARDIA [None]
